FAERS Safety Report 6084017-X (Version None)
Quarter: 2009Q1

REPORT INFORMATION
  Report Type: 
  Country: None (occurrence: None)
  Receive Date: 20090219
  Receipt Date: 20090206
  Transmission Date: 20090719
  Serious: Yes (Other)
  Sender: FDA-Public Use
  Company Number: BR-PFIZER INC-2009156097

PATIENT

DRUGS (3)
  1. VIAGRA [Suspect]
     Indication: ERECTILE DYSFUNCTION
     Dosage: 50 MG, AS NEEDED
     Route: 048
     Dates: start: 20080917, end: 20081201
  2. SIMVASTATIN [Concomitant]
     Dosage: UNK
     Dates: start: 19990101
  3. PANTOPRAZOLE [Concomitant]
     Dosage: UNK
     Dates: start: 19990101

REACTIONS (3)
  - EYE IRRITATION [None]
  - MYOPIA [None]
  - VISION BLURRED [None]
